FAERS Safety Report 15755105 (Version 2)
Quarter: 2019Q2

REPORT INFORMATION
  Report Type: Spontaneous
  Country: IL (occurrence: IL)
  Receive Date: 20181224
  Receipt Date: 20190531
  Transmission Date: 20190711
  Serious: Yes (Hospitalization, Other)
  Sender: FDA-Public Use
  Company Number: IL-SUN PHARMACEUTICAL INDUSTRIES LTD-2018R1-194471

PATIENT
  Age: 66 Year
  Sex: Male

DRUGS (1)
  1. LITHIUM. [Suspect]
     Active Substance: LITHIUM
     Indication: BIPOLAR DISORDER
     Dosage: UNKNOWN
     Route: 065

REACTIONS (26)
  - Epilepsy [Unknown]
  - Nephrogenic diabetes insipidus [Unknown]
  - Ataxia [Unknown]
  - Restlessness [Unknown]
  - Dysarthria [Unknown]
  - Toxicity to various agents [Unknown]
  - Drug level increased [Unknown]
  - Decreased appetite [Unknown]
  - Incoherent [Unknown]
  - Agitation [Unknown]
  - Asocial behaviour [Unknown]
  - Renal impairment [Unknown]
  - Acute kidney injury [Unknown]
  - Confusional state [Not Recovered/Not Resolved]
  - Glabellar reflex abnormal [Unknown]
  - Eye movement disorder [Not Recovered/Not Resolved]
  - Nervous system disorder [Unknown]
  - Insomnia [Unknown]
  - Metabolic disorder [Unknown]
  - Dysphemia [Not Recovered/Not Resolved]
  - Disorientation [Not Recovered/Not Resolved]
  - Respiratory failure [Unknown]
  - Coma scale [Unknown]
  - Tremor [Unknown]
  - Extrapyramidal disorder [Unknown]
  - Gaze palsy [Unknown]
